FAERS Safety Report 10012835 (Version 2)
Quarter: 2014Q2

REPORT INFORMATION
  Report Type: Report from Study
  Country: US (occurrence: US)
  Receive Date: 20140314
  Receipt Date: 20140408
  Transmission Date: 20141212
  Serious: Yes (Hospitalization)
  Sender: FDA-Public Use
  Company Number: US-VERTEX PHARMACEUTICALS INC-2014-001113

PATIENT
  Age: 20 Year
  Sex: Female

DRUGS (1)
  1. VX-770 [Suspect]
     Indication: CYSTIC FIBROSIS
     Dosage: 150 MG, BID
     Dates: start: 20120504

REACTIONS (4)
  - Renal pain [Not Recovered/Not Resolved]
  - Dehydration [Unknown]
  - Abdominal pain upper [Not Recovered/Not Resolved]
  - Chromaturia [Not Recovered/Not Resolved]
